FAERS Safety Report 8195547-9 (Version None)
Quarter: 2012Q1

REPORT INFORMATION
  Report Type: 
  Country: None (occurrence: None)
  Receive Date: 20120308
  Receipt Date: 20120306
  Transmission Date: 20120608
  Serious: Yes (Death)
  Sender: FDA-Public Use
  Company Number: PHHY2012EC019983

PATIENT
  Sex: Female

DRUGS (2)
  1. GENTEAL [Concomitant]
     Dosage: UNK
  2. EXFORGE HCT [Suspect]
     Indication: HYPERTENSION
     Dosage: 1 DF (160/5/12.5 MG) DAILY
     Route: 048

REACTIONS (1)
  - RESPIRATORY ARREST [None]
